FAERS Safety Report 24463543 (Version 1)
Quarter: 2024Q4

REPORT INFORMATION
  Report Type: Report from Study
  Country: US (occurrence: US)
  Receive Date: 20241018
  Receipt Date: 20241018
  Transmission Date: 20250114
  Serious: No
  Sender: ROCHE
  Company Number: US-ROCHE-3286309

PATIENT
  Age: 57 Year
  Sex: Female
  Weight: 79.38 kg

DRUGS (8)
  1. XOLAIR [Suspect]
     Active Substance: OMALIZUMAB
     Indication: Idiopathic urticaria
     Dosage: 2 SHOTS (1 IN LEFT AND 1 IN RIGHT) ;ONGOING: YES
     Route: 058
  2. XOLAIR [Suspect]
     Active Substance: OMALIZUMAB
     Dosage: ONGOING: NO
     Route: 058
  3. XOLAIR [Suspect]
     Active Substance: OMALIZUMAB
     Dosage: ONGOING: NO
     Route: 065
  4. XOLAIR [Suspect]
     Active Substance: OMALIZUMAB
     Dosage: ONGOING: NO
     Route: 065
  5. XOLAIR [Suspect]
     Active Substance: OMALIZUMAB
     Route: 065
  6. ATARAX [Concomitant]
     Active Substance: HYDROXYZINE HYDROCHLORIDE
  7. PREDNISONE [Concomitant]
     Active Substance: PREDNISONE
  8. FLONASE [Concomitant]
     Active Substance: FLUTICASONE PROPIONATE

REACTIONS (5)
  - Off label use [Unknown]
  - Urticaria [Recovered/Resolved]
  - Asthma [Unknown]
  - Amnesia [Unknown]
  - Pruritus [Unknown]
